FAERS Safety Report 8389457-1 (Version None)
Quarter: 2012Q2

REPORT INFORMATION
  Report Type: 
  Country: None (occurrence: None)
  Receive Date: 20120528
  Receipt Date: 20120515
  Transmission Date: 20120825
  Serious: Yes (Hospitalization, Other)
  Sender: FDA-Public Use
  Company Number: US-ELI_LILLY_AND_COMPANY-US201107002639

PATIENT
  Sex: Female

DRUGS (10)
  1. FORTEO [Suspect]
     Dosage: 20 UG, QD
     Route: 058
  2. FORTEO [Suspect]
     Dosage: 20 UG, UNK
  3. FORTEO [Suspect]
     Dosage: 20 UG, QD
     Route: 058
  4. ELAVIL [Concomitant]
     Indication: SLEEP DISORDER
     Dosage: UNK, OTHER
  5. PLAVIX [Concomitant]
  6. ASPIRIN [Concomitant]
  7. ZANTAC [Concomitant]
     Dosage: UNK, QD
  8. FORTEO [Suspect]
     Indication: OSTEOPOROSIS
     Dosage: 20 UG, QD
     Route: 058
     Dates: start: 20110615
  9. FORTEO [Suspect]
     Dosage: 20 UG, QD
     Route: 058
  10. ANTIHYPERTENSIVES [Concomitant]
     Dosage: UNK, EACH MORNING

REACTIONS (17)
  - PAIN IN EXTREMITY [None]
  - FALL [None]
  - MUSCULOSKELETAL STIFFNESS [None]
  - INJECTION SITE HAEMORRHAGE [None]
  - INJECTION SITE ERYTHEMA [None]
  - TONSILLITIS STREPTOCOCCAL [None]
  - ANGIOPATHY [None]
  - INJECTION SITE HAEMATOMA [None]
  - HEAD INJURY [None]
  - CEREBROVASCULAR ACCIDENT [None]
  - NAUSEA [None]
  - CONFUSIONAL STATE [None]
  - CONTUSION [None]
  - INJECTION SITE URTICARIA [None]
  - BACK PAIN [None]
  - INJECTION SITE STREAKING [None]
  - MOVEMENT DISORDER [None]
